FAERS Safety Report 4861058-9 (Version None)
Quarter: 2005Q4

REPORT INFORMATION
  Report Type: 
  Country: None (occurrence: None)
  Receive Date: 20051220
  Receipt Date: 20050825
  Transmission Date: 20060501
  Serious: Yes (Other)
  Sender: FDA-Public Use
  Company Number: US-GLAXOSMITHKLINE-A0571826A

PATIENT
  Age: 50 Year
  Sex: Female
  Weight: 70.5 kg

DRUGS (2)
  1. RELAFEN [Suspect]
     Indication: NECK INJURY
     Dosage: 500MG TWICE PER DAY
     Route: 048
     Dates: start: 20050808, end: 20050811
  2. SKELAXIN [Suspect]
     Indication: NECK INJURY
     Dosage: 800MG FOUR TIMES PER DAY
     Route: 048
     Dates: start: 20050808, end: 20050811

REACTIONS (7)
  - ALANINE AMINOTRANSFERASE INCREASED [None]
  - ASPARTATE AMINOTRANSFERASE INCREASED [None]
  - BLOOD CREATINE PHOSPHOKINASE INCREASED [None]
  - GAMMA-GLUTAMYLTRANSFERASE INCREASED [None]
  - MUSCULAR WEAKNESS [None]
  - MYALGIA [None]
  - RHABDOMYOLYSIS [None]
